FAERS Safety Report 20609714 (Version 1)
Quarter: 2022Q1

REPORT INFORMATION
  Report Type: Spontaneous
  Country: CN (occurrence: CN)
  Receive Date: 20220318
  Receipt Date: 20220318
  Transmission Date: 20220423
  Serious: Yes (Other)
  Sender: FDA-Public Use
  Company Number: CN-ABBVIE-22K-035-4320861-00

PATIENT
  Age: 21 Year
  Sex: Female

DRUGS (4)
  1. VALPROATE SODIUM [Suspect]
     Active Substance: VALPROATE SODIUM
     Indication: Affective disorder
     Route: 048
     Dates: start: 20200111, end: 20200113
  2. VALPROATE SODIUM [Suspect]
     Active Substance: VALPROATE SODIUM
     Route: 048
     Dates: start: 20200114, end: 20200120
  3. VALPROATE SODIUM [Suspect]
     Active Substance: VALPROATE SODIUM
     Dosage: AT NIGHT
     Route: 048
     Dates: start: 20200114, end: 20200120
  4. QUETIAPINE FUMARATE [Concomitant]
     Active Substance: QUETIAPINE FUMARATE
     Indication: Psychiatric symptom
     Dates: start: 20200111, end: 20200123

REACTIONS (1)
  - Rash [Recovering/Resolving]

NARRATIVE: CASE EVENT DATE: 20200119
